FAERS Safety Report 7249779-4 (Version None)
Quarter: 2011Q1

REPORT INFORMATION
  Report Type: 
  Country: None (occurrence: None)
  Receive Date: 20110128
  Receipt Date: 20100317
  Transmission Date: 20110831
  Serious: No
  Sender: FDA-Public Use
  Company Number: A0851431A

PATIENT
  Age: 44 Year
  Sex: Female

DRUGS (3)
  1. TRAZODONE [Concomitant]
  2. CYMBALTA [Suspect]
     Dosage: 60MG UNKNOWN
     Route: 048
     Dates: start: 20080101
  3. BUPROPION HYDROCHLORIDE [Suspect]
     Route: 048

REACTIONS (5)
  - SEXUAL DYSFUNCTION [None]
  - DRUG INEFFECTIVE [None]
  - INADEQUATE LUBRICATION [None]
  - ANORGASMIA [None]
  - ADVERSE DRUG REACTION [None]
